FAERS Safety Report 7549851-5 (Version None)
Quarter: 2011Q2

REPORT INFORMATION
  Report Type: 
  Country: None (occurrence: None)
  Receive Date: 20110615
  Receipt Date: 20110606
  Transmission Date: 20111010
  Serious: Yes (Hospitalization, Other)
  Sender: FDA-Public Use
  Company Number: US-ASTRAZENECA-2011SE25103

PATIENT
  Age: 750 Month
  Sex: Female

DRUGS (2)
  1. NEXIUM [Suspect]
     Route: 048
  2. SEROQUEL [Suspect]
     Indication: BIPOLAR DISORDER
     Route: 048

REACTIONS (5)
  - ACCIDENT AT HOME [None]
  - ACCIDENT [None]
  - MUSCLE RUPTURE [None]
  - JOINT SPRAIN [None]
  - GALLBLADDER OPERATION [None]
